FAERS Safety Report 16299153 (Version 2)
Quarter: 2019Q2

REPORT INFORMATION
  Report Type: Spontaneous
  Country: IE (occurrence: IE)
  Receive Date: 20190510
  Receipt Date: 20190612
  Transmission Date: 20190711
  Serious: Yes (Disabling)
  Sender: FDA-Public Use
  Company Number: IE-ACCORD-126688

PATIENT
  Age: 44 Year
  Sex: Male

DRUGS (8)
  1. AMITRIPTYLINE [Suspect]
     Active Substance: AMITRIPTYLINE
     Indication: MIGRAINE
     Dosage: DOSAGE FORM: UNSPECIFIED
     Route: 065
  2. VALPROIC ACID. [Suspect]
     Active Substance: VALPROIC ACID
     Indication: MIGRAINE
     Dosage: DOSAGE FORM: UNSPECIFIED
     Route: 065
  3. DIHYDROERGOTAMINE [Suspect]
     Active Substance: DIHYDROERGOTAMINE
     Indication: MIGRAINE
     Dosage: DOSAGE FORM: UNSPECIFIED
     Route: 065
  4. FLUNARIZINE [Suspect]
     Active Substance: FLUNARIZINE
     Indication: MIGRAINE
  5. SIBELIUM (FLUNARIZINE DIHYDROCHLORIDE) [Suspect]
     Active Substance: FLUNARIZINE HYDROCHLORIDE
     Indication: MIGRAINE
     Dosage: DOSAGE FORM: UNSPECIFIED
     Route: 065
  6. CANDESARTAN. [Suspect]
     Active Substance: CANDESARTAN
     Indication: MIGRAINE
     Dosage: DOSAGE FORM: UNSPECIFIED
     Route: 065
  7. AMILORIDE [Suspect]
     Active Substance: AMILORIDE
     Indication: MIGRAINE
     Dosage: DOSAGE FORM: UNSPECIFIED
     Route: 065
  8. GABAPENTIN. [Suspect]
     Active Substance: GABAPENTIN
     Indication: MIGRAINE
     Dosage: DOSAGE FORM: UNSPECIFIED
     Route: 065

REACTIONS (3)
  - Quality of life decreased [Unknown]
  - Weight increased [Unknown]
  - Drug ineffective [Unknown]
